FAERS Safety Report 9685348 (Version 1)
Quarter: 2013Q4

REPORT INFORMATION
  Report Type: Spontaneous
  Country: MX (occurrence: MX)
  Receive Date: 20131113
  Receipt Date: 20131113
  Transmission Date: 20140711
  Serious: Yes (Other)
  Sender: FDA-Public Use
  Company Number: PHHY2013MX129033

PATIENT
  Age: 61 Year
  Sex: Female

DRUGS (6)
  1. DIOVAN [Suspect]
     Indication: HYPERTENSION
     Dosage: 1 DF, DAILY (160 MG)
     Route: 048
     Dates: start: 1995, end: 201012
  2. DIOVAN [Suspect]
     Dosage: 2 DF, DAILY (160 MG)
     Route: 048
  3. DIOVAN [Suspect]
     Dosage: 1 DF, DAILY (320 MG)
     Route: 048
     Dates: start: 201012, end: 201310
  4. GABAPENTIN [Concomitant]
     Indication: ANXIETY
     Dosage: 3 DF, DAILY
     Dates: start: 2010
  5. OXYCODONE [Concomitant]
     Indication: PAIN
     Dosage: 2 DF, DAILY
     Dates: start: 1991
  6. HYDROCODONE [Concomitant]
     Indication: PAIN
     Dosage: 6 DF, DAILY
     Dates: start: 1990

REACTIONS (2)
  - Gallbladder neoplasm [Recovering/Resolving]
  - Malaise [Not Recovered/Not Resolved]
